FAERS Safety Report 8054318-4 (Version None)
Quarter: 2012Q1

REPORT INFORMATION
  Report Type: 
  Country: None (occurrence: None)
  Receive Date: 20120118
  Receipt Date: 20120112
  Transmission Date: 20120608
  Serious: Yes (Hospitalization)
  Sender: FDA-Public Use
  Company Number: PHHY2011JP88362

PATIENT
  Age: 59 Year
  Sex: Female

DRUGS (6)
  1. OXYCONTIN [Concomitant]
  2. OXINORM [Concomitant]
     Dosage: 10 MG, UNK
     Route: 048
     Dates: start: 20080620
  3. RADIOTHERAPY [Concomitant]
  4. FEMARA [Concomitant]
  5. ZOMETA [Suspect]
     Indication: METASTASES TO BONE
     Dosage: 4 MG, QMO
     Route: 041
     Dates: start: 20080624, end: 20110121
  6. FAMOTIDINE [Concomitant]

REACTIONS (15)
  - OSTEONECROSIS OF JAW [None]
  - DENTAL CARIES [None]
  - SWELLING [None]
  - GINGIVAL INFECTION [None]
  - PERIODONTITIS [None]
  - EATING DISORDER [None]
  - WEIGHT DECREASED [None]
  - TOOTH LOSS [None]
  - BONE FISTULA [None]
  - ORAL PAIN [None]
  - ORAL CAVITY FISTULA [None]
  - NECROSIS [None]
  - ERYTHEMA [None]
  - HYPOPHAGIA [None]
  - PAIN IN JAW [None]
